FAERS Safety Report 5144290-9 (Version None)
Quarter: 2006Q4

REPORT INFORMATION
  Report Type: 
  Country: None (occurrence: None)
  Receive Date: 20061030
  Receipt Date: 20061018
  Transmission Date: 20070319
  Serious: Yes (Disabling)
  Sender: FDA-Public Use
  Company Number: US200609003417

PATIENT
  Age: 58 Year
  Sex: Female

DRUGS (1)
  1. HUMALOG [Suspect]
     Indication: DRUG USE FOR UNKNOWN INDICATION
     Dosage: PER SLIDING SCALE
     Dates: start: 20040101

REACTIONS (3)
  - ASTHENIA [None]
  - FALL [None]
  - UNEMPLOYMENT [None]
